FAERS Safety Report 22294276 (Version 1)
Quarter: 2023Q2

REPORT INFORMATION
  Report Type: Spontaneous
  Country: PT (occurrence: PT)
  Receive Date: 20230508
  Receipt Date: 20230508
  Transmission Date: 20230722
  Serious: Yes (Other)
  Sender: FDA-Public Use
  Company Number: None

PATIENT
  Age: 36 Year
  Sex: Female

DRUGS (4)
  1. CLINDAMYCIN HYDROCHLORIDE [Interacting]
     Active Substance: CLINDAMYCIN HYDROCHLORIDE
     Indication: Tonsillitis
     Dosage: UNK UNK, 3X/DAY
     Route: 048
     Dates: start: 20230409, end: 20230411
  2. CEFTRIAXONE [Interacting]
     Active Substance: CEFTRIAXONE
     Indication: Tonsillitis
     Dosage: UNK, 1X/DAY
     Route: 048
     Dates: start: 20230409, end: 20230411
  3. DEFLAZACORT [Concomitant]
     Active Substance: DEFLAZACORT
     Dosage: UNK
     Route: 048
     Dates: start: 20230409, end: 20230411
  4. DAFALGAN [Concomitant]
     Active Substance: ACETAMINOPHEN
     Dosage: UNK
     Route: 048
     Dates: start: 20230409, end: 20230411

REACTIONS (3)
  - Skin lesion [Unknown]
  - Rash maculo-papular [Unknown]
  - Drug interaction [Unknown]

NARRATIVE: CASE EVENT DATE: 20230409
